FAERS Safety Report 21211682 (Version 2)
Quarter: 2022Q3

REPORT INFORMATION
  Report Type: Report from Study
  Country: KW (occurrence: KW)
  Receive Date: 20220815
  Receipt Date: 20220922
  Transmission Date: 20221027
  Serious: Yes (Hospitalization, Other)
  Sender: FDA-Public Use
  Company Number: KW-NOVARTISPH-NVSC2022KW183203

PATIENT
  Age: 66 Year
  Sex: Female

DRUGS (5)
  1. COSENTYX [Suspect]
     Active Substance: SECUKINUMAB
     Indication: Ankylosing spondylitis
     Dosage: 150 MG
     Route: 058
     Dates: start: 20220621
  2. COSENTYX [Suspect]
     Active Substance: SECUKINUMAB
     Dosage: 150 MG (FIRST LOADING DOSE)
     Route: 058
     Dates: start: 20220628
  3. COSENTYX [Suspect]
     Active Substance: SECUKINUMAB
     Dosage: 150 MG (SECOND LOADING DOSE)
     Route: 058
     Dates: start: 20220705
  4. COSENTYX [Suspect]
     Active Substance: SECUKINUMAB
     Dosage: 150 MG (THIRD LOADING DOSE)
     Route: 058
     Dates: start: 20220712
  5. COSENTYX [Suspect]
     Active Substance: SECUKINUMAB
     Dosage: 150 MG (FOURTH LOADING DOSE)
     Route: 058
     Dates: start: 20220719

REACTIONS (8)
  - COVID-19 [Not Recovered/Not Resolved]
  - Cough [Recovering/Resolving]
  - Pain [Recovering/Resolving]
  - Neutropenia [Recovered/Resolved]
  - Influenza [Recovering/Resolving]
  - White blood cell count decreased [Unknown]
  - Malaise [Unknown]
  - Fatigue [Unknown]

NARRATIVE: CASE EVENT DATE: 20220804
